FAERS Safety Report 5334841-3 (Version None)
Quarter: 2007Q2

REPORT INFORMATION
  Report Type: 
  Country: None (occurrence: None)
  Receive Date: 20070525
  Receipt Date: 20070319
  Transmission Date: 20071010
  Serious: Yes (Hospitalization)
  Sender: FDA-Public Use
  Company Number: JP-ROCHE-485555

PATIENT
  Age: 7 Year
  Sex: Male
  Weight: 26 kg

DRUGS (4)
  1. TAMIFLU [Suspect]
     Dosage: DOSE FORM: DRY SYRUP.
     Route: 048
     Dates: start: 20070226, end: 20070226
  2. SOLITA-T3 [Concomitant]
     Route: 041
     Dates: start: 20070226, end: 20070227
  3. RELENZA [Concomitant]
     Dosage: ROUTE REPORTED AS RESPIRATORY (INHALATION).
     Route: 055
     Dates: start: 20070226, end: 20070303
  4. ACETAMINOPHEN [Concomitant]
     Dosage: FORM REPORTED AS ORAL FORMULATION (NOT OTHERWISE SPECIFIED)
     Route: 048
     Dates: start: 20070226

REACTIONS (1)
  - ABNORMAL BEHAVIOUR [None]
